FAERS Safety Report 10462206 (Version 1)
Quarter: 2014Q3

REPORT INFORMATION
  Report Type: Spontaneous
  Country: US (occurrence: US)
  Receive Date: 20140918
  Receipt Date: 20140918
  Transmission Date: 20150326
  Serious: Yes (Other)
  Sender: FDA-Public Use
  Company Number: US-GLAXOSMITHKLINE-A1089564A

PATIENT
  Sex: Male

DRUGS (1)
  1. ADVAIR HFA [Suspect]
     Active Substance: FLUTICASONE PROPIONATE\SALMETEROL XINAFOATE
     Indication: ASTHMA
     Route: 065
     Dates: start: 2007

REACTIONS (6)
  - Aneurysm repair [Unknown]
  - Surgery [Unknown]
  - Thrombosis [Unknown]
  - Back disorder [Unknown]
  - Hypoacusis [Unknown]
  - Aneurysm [Unknown]
